FAERS Safety Report 24396523 (Version 1)
Quarter: 2024Q4

REPORT INFORMATION
  Report Type: Spontaneous
  Country: US (occurrence: US)
  Receive Date: 20241004
  Receipt Date: 20241004
  Transmission Date: 20250115
  Serious: Yes (Life-Threatening, Hospitalization)
  Sender: MYLAN
  Company Number: US-MYLANLABS-2024M1090547

PATIENT
  Age: 86 Year
  Sex: Male

DRUGS (4)
  1. NITROGLYCERIN [Suspect]
     Active Substance: NITROGLYCERIN
     Indication: Angina pectoris
     Dosage: 0.4 MILLIGRAM
     Route: 060
  2. EPINEPHRINE [Suspect]
     Active Substance: EPINEPHRINE
     Indication: Cardiac arrest
     Dosage: UNK
     Route: 065
  3. ATROPINE [Suspect]
     Active Substance: ATROPINE
     Indication: Cardiac arrest
     Dosage: UNK
     Route: 065
  4. SODIUM CHLORIDE [Concomitant]
     Active Substance: SODIUM CHLORIDE
     Indication: Product used for unknown indication
     Dosage: 250 MILLILITER, BOLUS
     Route: 065

REACTIONS (2)
  - Cardiac arrest [Recovered/Resolved]
  - Drug ineffective [Unknown]
